FAERS Safety Report 18923175 (Version 1)
Quarter: 2021Q1

REPORT INFORMATION
  Report Type: Other
  Country: US (occurrence: US)
  Receive Date: 20210222
  Receipt Date: 20210222
  Transmission Date: 20210420
  Serious: Yes (Hospitalization, Other)
  Sender: FDA-Public Use
  Company Number: US-ROCHE-2771759

PATIENT
  Age: 37 Year
  Sex: Female

DRUGS (2)
  1. DIAZEPAM. [Suspect]
     Active Substance: DIAZEPAM
     Indication: QUADRIPLEGIA
     Route: 065
  2. DIAZEPAM. [Suspect]
     Active Substance: DIAZEPAM
     Indication: CEREBRAL PALSY
     Route: 065

REACTIONS (4)
  - Generalised tonic-clonic seizure [Recovered/Resolved]
  - Seizure [Recovered/Resolved]
  - Pyrexia [Recovered/Resolved]
  - Agitation [Recovered/Resolved]
